FAERS Safety Report 6149808-5 (Version None)
Quarter: 2009Q2

REPORT INFORMATION
  Report Type: 
  Country: None (occurrence: None)
  Receive Date: 20090409
  Receipt Date: 20090402
  Transmission Date: 20091009
  Serious: Yes (Other)
  Sender: FDA-Public Use
  Company Number: US-ASTRAZENECA-2009UW04895

PATIENT
  Sex: Male

DRUGS (2)
  1. TOPROL-XL [Suspect]
     Route: 048
  2. CRESTOR [Suspect]
     Route: 048

REACTIONS (10)
  - CARDIAC OPERATION [None]
  - CARDIAC PACEMAKER INSERTION [None]
  - GOUT [None]
  - INFLUENZA [None]
  - KNEE ARTHROPLASTY [None]
  - OROPHARYNGEAL PAIN [None]
  - PAIN [None]
  - PROSTATE CANCER [None]
  - STENT PLACEMENT [None]
  - SURGERY [None]
